FAERS Safety Report 12982321 (Version 1)
Quarter: 2016Q4

REPORT INFORMATION
  Report Type: Spontaneous
  Country: US (occurrence: US)
  Receive Date: 20161128
  Receipt Date: 20161128
  Transmission Date: 20170207
  Serious: No
  Sender: FDA-Public Use
  Company Number: None

PATIENT
  Age: 64 Year
  Sex: Female

DRUGS (1)
  1. MYCOPHENOLAT MOF CAP 250MG [Suspect]
     Active Substance: MYCOPHENOLATE MOFETIL
     Indication: RENAL TRANSPLANT

REACTIONS (11)
  - Vomiting [None]
  - Insomnia [None]
  - Constipation [None]
  - Palpitations [None]
  - Amnesia [None]
  - Renal impairment [None]
  - Swelling face [None]
  - Nausea [None]
  - Asthenia [None]
  - Stomatitis [None]
  - Dialysis [None]

NARRATIVE: CASE EVENT DATE: 20161128
